FAERS Safety Report 10044159 (Version 1)
Quarter: 2014Q1

REPORT INFORMATION
  Report Type: Spontaneous
  Country: JP (occurrence: JP)
  Receive Date: 20140328
  Receipt Date: 20140328
  Transmission Date: 20141002
  Serious: Yes (Other)
  Sender: FDA-Public Use
  Company Number: JP-ELI_LILLY_AND_COMPANY-JP201403008166

PATIENT
  Age: 82 Year
  Sex: Male

DRUGS (6)
  1. CYMBALTA [Suspect]
     Indication: DEPRESSIVE SYMPTOM
     Dosage: 20 MG, QD
     Route: 048
     Dates: start: 201312, end: 201401
  2. CYMBALTA [Suspect]
     Dosage: 30 MG, QD
     Route: 048
     Dates: start: 201401, end: 20140121
  3. CYMBALTA [Suspect]
     Dosage: 40 MG, QD
     Route: 048
     Dates: start: 20140122, end: 20140206
  4. CYMBALTA [Suspect]
     Dosage: 60 MG, QD
     Route: 048
     Dates: start: 20140207, end: 20140313
  5. MYSLEE [Concomitant]
     Dosage: UNK
     Route: 048
     Dates: start: 201312
  6. LENDORMIN [Concomitant]
     Dosage: UNK
     Route: 048
     Dates: start: 201312

REACTIONS (2)
  - Prostate cancer [Unknown]
  - Urinary retention [Recovering/Resolving]
